FAERS Safety Report 19463734 (Version 1)
Quarter: 2021Q2

REPORT INFORMATION
  Report Type: Spontaneous
  Country: GB (occurrence: GB)
  Receive Date: 20210625
  Receipt Date: 20210625
  Transmission Date: 20210717
  Serious: Yes (Other)
  Sender: FDA-Public Use
  Company Number: GB-DRREDDYS-SPO/UKI/21/0136755

PATIENT
  Age: 35 Year
  Sex: Female
  Weight: 61.68 kg

DRUGS (2)
  1. OMEPRAZOLE. [Suspect]
     Active Substance: OMEPRAZOLE
     Indication: ILL-DEFINED DISORDER
     Route: 048
     Dates: start: 20210608, end: 20210615
  2. PIRITEZE ALLERGY [Concomitant]
     Indication: ILL-DEFINED DISORDER

REACTIONS (14)
  - Joint swelling [Recovered/Resolved with Sequelae]
  - Abdominal pain upper [Recovered/Resolved with Sequelae]
  - Insomnia [Recovered/Resolved]
  - Dizziness [Recovering/Resolving]
  - Depressed mood [Recovering/Resolving]
  - Headache [Recovered/Resolved]
  - Vision blurred [Not Recovered/Not Resolved]
  - Eructation [Recovered/Resolved with Sequelae]
  - Blepharospasm [Not Recovered/Not Resolved]
  - Vaginal discharge [Not Recovered/Not Resolved]
  - Nausea [Recovered/Resolved with Sequelae]
  - Vertigo [Recovering/Resolving]
  - Anxiety [Recovered/Resolved with Sequelae]
  - Pollakiuria [Recovered/Resolved]

NARRATIVE: CASE EVENT DATE: 20210610
